FAERS Safety Report 12757485 (Version 1)
Quarter: 2016Q3

REPORT INFORMATION
  Report Type: Report from Study
  Country: CA (occurrence: CA)
  Receive Date: 20160919
  Receipt Date: 20160919
  Transmission Date: 20161109
  Serious: Yes (Hospitalization)
  Sender: FDA-Public Use
  Company Number: CA-ROCHE-ITM201504IM013254

PATIENT
  Sex: Female
  Weight: 39.04 kg

DRUGS (13)
  1. ALENDRONATE [Concomitant]
     Active Substance: ALENDRONATE SODIUM
  2. SENOKOT [Concomitant]
     Active Substance: SENNOSIDES
  3. PREDNISONE. [Concomitant]
     Active Substance: PREDNISONE
  4. ESBRIET [Suspect]
     Active Substance: PIRFENIDONE
     Indication: IDIOPATHIC PULMONARY FIBROSIS
     Route: 048
     Dates: start: 20150308
  5. DOMPERIDONE [Concomitant]
     Active Substance: DOMPERIDONE
  6. CICLESONIDE [Concomitant]
     Active Substance: CICLESONIDE
  7. ESBRIET [Suspect]
     Active Substance: PIRFENIDONE
     Dosage: 1335 MG
     Route: 048
  8. DILTIAZEM. [Concomitant]
     Active Substance: DILTIAZEM
  9. RABEPRAZOLE [Concomitant]
     Active Substance: RABEPRAZOLE
  10. CANDESARTAN [Concomitant]
     Active Substance: CANDESARTAN
  11. FUROSEMIDE. [Concomitant]
     Active Substance: FUROSEMIDE
  12. LORAZEPAM. [Concomitant]
     Active Substance: LORAZEPAM
  13. PLENDIL [Concomitant]
     Active Substance: FELODIPINE

REACTIONS (1)
  - Lower respiratory tract infection [Unknown]
